FAERS Safety Report 11444926 (Version 2)
Quarter: 2015Q3

REPORT INFORMATION
  Report Type: Report from Study
  Country: JP (occurrence: JP)
  Receive Date: 20150902
  Receipt Date: 20150904
  Transmission Date: 20151125
  Serious: Yes (Other)
  Sender: FDA-Public Use
  Company Number: PHHY2014JP078516

PATIENT
  Age: 23 Year
  Sex: Female

DRUGS (16)
  1. LIMAS [Suspect]
     Active Substance: LITHIUM CARBONATE
     Indication: PRODUCT USED FOR UNKNOWN INDICATION
     Route: 065
  2. NITRAZEPAM [Concomitant]
     Active Substance: NITRAZEPAM
     Dosage: 5 MG, QD
     Route: 048
     Dates: start: 20120926, end: 20121112
  3. LITHIUM CARBONATE. [Concomitant]
     Active Substance: LITHIUM CARBONATE
     Indication: SCHIZOPHRENIA
     Dosage: 600 MG, QD
     Route: 048
     Dates: start: 20131204
  4. DIAZEPAM. [Concomitant]
     Active Substance: DIAZEPAM
     Dosage: 10 MG, QD
     Route: 065
     Dates: start: 20130902, end: 20130902
  5. BROTIZOLAM [Concomitant]
     Active Substance: BROTIZOLAM
     Indication: SCHIZOPHRENIA
     Dosage: 0.25 MG, PRN
     Route: 048
     Dates: start: 20131029, end: 20131030
  6. DIAZEPAM. [Concomitant]
     Active Substance: DIAZEPAM
     Dosage: 10 MG, QD
     Route: 065
     Dates: start: 20131203, end: 20131203
  7. CLOZARIL [Suspect]
     Active Substance: CLOZAPINE
     Indication: SCHIZOPHRENIA
     Dosage: UNK
     Route: 048
     Dates: start: 20120110
  8. CLOZARIL [Suspect]
     Active Substance: CLOZAPINE
     Dosage: 400 MG, UNK
     Route: 048
     Dates: start: 20130423
  9. DIAZEPAM. [Concomitant]
     Active Substance: DIAZEPAM
     Indication: SCHIZOPHRENIA
     Dosage: 10 MG, QD
     Route: 065
     Dates: start: 20130306, end: 20130306
  10. CLOZARIL [Suspect]
     Active Substance: CLOZAPINE
     Dosage: 450 MG, QD
     Route: 048
     Dates: start: 20120925, end: 20130422
  11. DIAZEPAM. [Concomitant]
     Active Substance: DIAZEPAM
     Dosage: 10 MG, QD
     Route: 065
     Dates: start: 20131120, end: 20131120
  12. NITRAZEPAM [Concomitant]
     Active Substance: NITRAZEPAM
     Indication: SCHIZOPHRENIA
     Dosage: 10 MG, QD
     Route: 048
     Dates: start: 20120925, end: 20121107
  13. NITRAZEPAM [Concomitant]
     Active Substance: NITRAZEPAM
     Dosage: 2 MG, QD
     Route: 048
     Dates: start: 20121113, end: 20131028
  14. MAGNESIUM OXIDE. [Concomitant]
     Active Substance: MAGNESIUM OXIDE
     Dosage: 1320 MG, QD
     Route: 048
     Dates: start: 20121009
  15. DIAZEPAM. [Concomitant]
     Active Substance: DIAZEPAM
     Dosage: 10 MG, QD
     Route: 065
     Dates: start: 20140108, end: 20140108
  16. MAGNESIUM OXIDE. [Concomitant]
     Active Substance: MAGNESIUM OXIDE
     Indication: SCHIZOPHRENIA
     Dosage: 1500 MG, QD
     Route: 048
     Dates: start: 20120925, end: 20121008

REACTIONS (19)
  - Blood pressure decreased [Recovered/Resolved]
  - Generalised tonic-clonic seizure [Recovered/Resolved]
  - Subcutaneous haematoma [Unknown]
  - Fall [Unknown]
  - Somnolence [Recovered/Resolved]
  - Heart rate increased [Recovered/Resolved]
  - Glucose tolerance impaired [Unknown]
  - Pallor [Unknown]
  - Altered state of consciousness [Recovered/Resolved]
  - Blood pressure decreased [Recovered/Resolved]
  - Glucose urine [Recovered/Resolved]
  - Dysmenorrhoea [Recovered/Resolved]
  - Blood pressure decreased [Recovered/Resolved]
  - Parkinsonism [Not Recovered/Not Resolved]
  - Glycosylated haemoglobin increased [Recovered/Resolved]
  - Anaemia [Not Recovered/Not Resolved]
  - Influenza [Recovered/Resolved]
  - Glucose urine [Recovered/Resolved]
  - Heart rate increased [Recovered/Resolved]

NARRATIVE: CASE EVENT DATE: 20121009
